FAERS Safety Report 5918415-9 (Version None)
Quarter: 2008Q4

REPORT INFORMATION
  Report Type: 
  Country: None (occurrence: None)
  Receive Date: 20081014
  Receipt Date: 20081014
  Transmission Date: 20090506
  Serious: Yes (Other)
  Sender: FDA-Public Use
  Company Number: None

PATIENT
  Sex: Female

DRUGS (1)
  1. SYMBICORT [Suspect]
     Dosage: 160 2 BID PORAL 10/8/08 REACTION
     Route: 048
     Dates: start: 20081005

REACTIONS (2)
  - DRUG HYPERSENSITIVITY [None]
  - PEAK EXPIRATORY FLOW RATE DECREASED [None]
